FAERS Safety Report 17657198 (Version 1)
Quarter: 2020Q2

REPORT INFORMATION
  Report Type: Spontaneous
  Country: AR (occurrence: AR)
  Receive Date: 20200410
  Receipt Date: 20200410
  Transmission Date: 20200713
  Serious: Yes (Other)
  Sender: FDA-Public Use
  Company Number: AR-PFIZER INC-2020147412

PATIENT
  Age: 78 Year
  Sex: Female

DRUGS (1)
  1. XELJANZ [Suspect]
     Active Substance: TOFACITINIB CITRATE
     Indication: PSORIATIC ARTHROPATHY
     Dosage: 5 MG, 2X/DAY
     Dates: start: 20190730

REACTIONS (11)
  - Inflammation [Unknown]
  - Visual impairment [Unknown]
  - Finger deformity [Unknown]
  - Intervertebral disc protrusion [Unknown]
  - Scoliosis [Unknown]
  - Foot deformity [Unknown]
  - Pain [Unknown]
  - Cardiomegaly [Unknown]
  - Vertebral lesion [Unknown]
  - Blood pressure increased [Unknown]
  - Emotional distress [Unknown]
